FAERS Safety Report 14986332 (Version 1)
Quarter: 2018Q2

REPORT INFORMATION
  Report Type: Report from Study
  Country: US (occurrence: US)
  Receive Date: 20180607
  Receipt Date: 20180607
  Transmission Date: 20180711
  Serious: Yes (Other)
  Sender: FDA-Public Use
  Company Number: US-AMGEN-USASL2018003248

PATIENT
  Age: 68 Year
  Sex: Male

DRUGS (2)
  1. REPATHA [Suspect]
     Active Substance: EVOLOCUMAB
     Indication: BLOOD CHOLESTEROL INCREASED
     Dosage: 140 MG, Q2WK
     Route: 065
  2. REPATHA [Suspect]
     Active Substance: EVOLOCUMAB
     Indication: HYPERCHOLESTEROLAEMIA
     Dosage: 140 MG, QMO
     Route: 065

REACTIONS (7)
  - Spinal fusion surgery [Unknown]
  - Diabetes mellitus [Unknown]
  - Low density lipoprotein decreased [Unknown]
  - Muscle spasms [Not Recovered/Not Resolved]
  - Procedural pain [Not Recovered/Not Resolved]
  - Dizziness [Unknown]
  - Back disorder [Unknown]

NARRATIVE: CASE EVENT DATE: 20180205
